FAERS Safety Report 13099470 (Version 1)
Quarter: 2017Q1

REPORT INFORMATION
  Report Type: Spontaneous
  Country: LK (occurrence: LK)
  Receive Date: 20170109
  Receipt Date: 20170109
  Transmission Date: 20170428
  Serious: Yes (Hospitalization, Disabling, Other)
  Sender: FDA-Public Use
  Company Number: LK-TELIGENT, INC-IGIL20160359

PATIENT
  Age: 51 Year
  Sex: Male

DRUGS (2)
  1. CEFUROXIME SODIUM. [Suspect]
     Active Substance: CEFUROXIME SODIUM
     Indication: BILE DUCT STONE
     Route: 048
  2. CEFUROXIME SODIUM. [Suspect]
     Active Substance: CEFUROXIME SODIUM
     Indication: BILE DUCT STONE
     Route: 042

REACTIONS (8)
  - Condition aggravated [Recovered/Resolved]
  - Chills [Recovered/Resolved]
  - Drug-induced liver injury [Recovered/Resolved]
  - Cholangitis [Recovered/Resolved]
  - Cholestasis [Recovered/Resolved]
  - Pyrexia [Recovered/Resolved]
  - Jaundice cholestatic [Recovered/Resolved]
  - Leukocytosis [Recovered/Resolved]
